FAERS Safety Report 4557536-2 (Version None)
Quarter: 2005Q1

REPORT INFORMATION
  Report Type: 
  Country: None (occurrence: None)
  Receive Date: 20050103
  Receipt Date: 20040831
  Transmission Date: 20050727
  Serious: Yes (Other)
  Sender: FDA-Public Use
  Company Number: 2004UW18396

PATIENT
  Age: 69 Year
  Sex: Male
  Weight: 78.0187 kg

DRUGS (3)
  1. CRESTOR [Suspect]
     Dosage: 10 MG QD PO
     Route: 048
  2. PLAVIX [Concomitant]
  3. PROTONIX ^WYETH-AYERST^ [Concomitant]

REACTIONS (3)
  - EYE SWELLING [None]
  - RASH [None]
  - SWELLING FACE [None]
